FAERS Safety Report 5301815-8 (Version None)
Quarter: 2007Q2

REPORT INFORMATION
  Report Type: 
  Country: None (occurrence: None)
  Receive Date: 20070419
  Receipt Date: 20070409
  Transmission Date: 20071010
  Serious: Yes (Other)
  Sender: FDA-Public Use
  Company Number: PHEH2007US04695

PATIENT
  Age: 37 Year
  Sex: Female

DRUGS (5)
  1. ZELNORM [Suspect]
     Indication: IRRITABLE BOWEL SYNDROME
     Dosage: 6 MG, BID
     Route: 048
     Dates: start: 20060101, end: 20070409
  2. SYNTHROID [Concomitant]
  3. DIAZEPAM [Concomitant]
  4. FLONASE [Concomitant]
  5. ALBUTEROL [Concomitant]

REACTIONS (4)
  - CONDITION AGGRAVATED [None]
  - HYPERKALAEMIA [None]
  - HYPOAESTHESIA [None]
  - PALPITATIONS [None]
